FAERS Safety Report 15791081 (Version 1)
Quarter: 2019Q1

REPORT INFORMATION
  Report Type: Spontaneous
  Country: US (occurrence: US)
  Receive Date: 20190104
  Receipt Date: 20190104
  Transmission Date: 20190417
  Serious: Yes (Death, Hospitalization)
  Sender: FDA-Public Use
  Company Number: US-THERATECHNOLOGIES INC.-2018-THE-IBA-000047

PATIENT
  Age: 53 Year
  Sex: Male

DRUGS (4)
  1. TROGARZO [Suspect]
     Active Substance: IBALIZUMAB-UIYK
     Dosage: UNK
     Route: 042
     Dates: start: 20181113
  2. TROGARZO [Suspect]
     Active Substance: IBALIZUMAB-UIYK
     Dosage: UNK
     Route: 042
     Dates: start: 20181128
  3. TROGARZO [Suspect]
     Active Substance: IBALIZUMAB-UIYK
     Indication: PRODUCT USED FOR UNKNOWN INDICATION
     Dosage: UNK
     Route: 042
  4. TROGARZO [Suspect]
     Active Substance: IBALIZUMAB-UIYK
     Dosage: UNK
     Route: 042
     Dates: start: 20181212

REACTIONS (2)
  - Death [Fatal]
  - Hospitalisation [Fatal]

NARRATIVE: CASE EVENT DATE: 20181226
